FAERS Safety Report 8032615-6 (Version None)
Quarter: 2012Q1

REPORT INFORMATION
  Report Type: 
  Country: None (occurrence: None)
  Receive Date: 20120110
  Receipt Date: 20110323
  Transmission Date: 20120608
  Serious: No
  Sender: FDA-Public Use
  Company Number: US-TYCO HEALTHCARE/MALLINCKRODT-T201100656

PATIENT
  Sex: Female

DRUGS (2)
  1. CYSTO-CONRAY II [Suspect]
     Indication: COMPUTERISED TOMOGRAM
     Dosage: 100 ML, SINGLE
     Route: 042
     Dates: start: 20110321, end: 20110321
  2. OPTIRAY 160 [Suspect]
     Indication: COMPUTERISED TOMOGRAM
     Dosage: UNK

REACTIONS (2)
  - WRONG DRUG ADMINISTERED [None]
  - INCORRECT ROUTE OF DRUG ADMINISTRATION [None]
